FAERS Safety Report 9292727 (Version 1)
Quarter: 2013Q2

REPORT INFORMATION
  Report Type: Spontaneous
  Country: US (occurrence: None)
  Receive Date: 20130515
  Receipt Date: 20130515
  Transmission Date: 20140414
  Serious: Yes (Disabling)
  Sender: FDA-Public Use
  Company Number: None

PATIENT
  Age: 64 Year
  Sex: Male
  Weight: 64.86 kg

DRUGS (2)
  1. TAMIFLU [Suspect]
     Indication: INFLUENZA
     Dates: start: 20130129, end: 20130204
  2. TAMIFLU [Suspect]
     Dates: start: 20130129, end: 20130204

REACTIONS (2)
  - Ageusia [None]
  - Anosmia [None]
